FAERS Safety Report 4375723-3 (Version None)
Quarter: 2004Q2

REPORT INFORMATION
  Report Type: 
  Country: None (occurrence: None)
  Receive Date: 20040608
  Receipt Date: 20030201
  Transmission Date: 20050107
  Serious: Yes (Life-Threatening, Other)
  Sender: FDA-Public Use
  Company Number: 200310396BCC

PATIENT
  Age: 43 Year
  Sex: Male
  Weight: 115.6672 kg

DRUGS (3)
  1. ALEVE [Suspect]
     Dosage: 440 MG, ONCE, ORAL
     Route: 048
     Dates: start: 20030131
  2. PAXIL [Concomitant]
  3. ZOCOR [Concomitant]

REACTIONS (6)
  - ANAPHYLACTIC SHOCK [None]
  - HYPOTENSION [None]
  - LOSS OF CONSCIOUSNESS [None]
  - PRURITUS [None]
  - SWOLLEN TONGUE [None]
  - URTICARIA [None]
